FAERS Safety Report 19121282 (Version 1)
Quarter: 2021Q2

REPORT INFORMATION
  Report Type: Spontaneous
  Country: US (occurrence: US)
  Receive Date: 20210412
  Receipt Date: 20210412
  Transmission Date: 20210717
  Serious: Yes (Other)
  Sender: FDA-Public Use
  Company Number: US-GLAXOSMITHKLINE-US2021GSK080465

PATIENT
  Sex: Male

DRUGS (8)
  1. RANITIDINE CAPSULE [Suspect]
     Active Substance: RANITIDINE
     Indication: DYSPEPSIA
     Dosage: 150 MG, WE, 2 TO 3 TIMES? AS NEEDED
     Route: 065
     Dates: start: 201001, end: 201312
  2. ZANTAC [Suspect]
     Active Substance: RANITIDINE HYDROCHLORIDE
     Indication: DYSPEPSIA
     Dosage: 150 MG, WE, 2 TO 3 TIMES? AS NEEDED
     Route: 065
     Dates: start: 201001, end: 201312
  3. RANITIDINE. [Suspect]
     Active Substance: RANITIDINE
     Indication: DYSPEPSIA
     Dosage: 150 MG, WE, 2X?3X AS NEEDED
     Route: 065
     Dates: start: 201401, end: 201904
  4. RANITIDINE. [Suspect]
     Active Substance: RANITIDINE
     Indication: DYSPEPSIA
     Dosage: 300 MG, WE, 2X?3X AS NEEDED
     Route: 065
     Dates: start: 201401, end: 201904
  5. ZANTAC [Suspect]
     Active Substance: RANITIDINE HYDROCHLORIDE
     Indication: DYSPEPSIA
  6. RANITIDINE CAPSULE [Suspect]
     Active Substance: RANITIDINE
     Indication: DYSPEPSIA
  7. RANITIDINE. [Suspect]
     Active Substance: RANITIDINE
     Indication: DYSPEPSIA
     Dosage: 300 MG, WE, 2X?3X AS NEEDED
     Route: 065
     Dates: start: 201401, end: 201904
  8. RANITIDINE. [Suspect]
     Active Substance: RANITIDINE
     Indication: DYSPEPSIA
     Dosage: 150 MG, WE, 2X?3X AS NEEDED
     Route: 065
     Dates: start: 201401, end: 201904

REACTIONS (1)
  - Bladder cancer [Unknown]
